FAERS Safety Report 6025311-8 (Version None)
Quarter: 2008Q4

REPORT INFORMATION
  Report Type: 
  Country: None (occurrence: None)
  Receive Date: 20081231
  Receipt Date: 20081223
  Transmission Date: 20090506
  Serious: Yes (Disabling)
  Sender: FDA-Public Use
  Company Number: PHHY2008GB27287

PATIENT
  Sex: Female

DRUGS (3)
  1. STALEVO 100 [Suspect]
     Indication: PARKINSON'S DISEASE
     Dosage: 100X5
     Route: 048
     Dates: start: 20070101, end: 20080901
  2. OMEPRAZOLE [Concomitant]
     Dosage: 20 MG
  3. PRAMIPEXOLE DIHYDROCHLORIDE [Concomitant]
     Dosage: 3 MG

REACTIONS (1)
  - TOOTH LOSS [None]
